FAERS Safety Report 16589314 (Version 1)
Quarter: 2019Q3

REPORT INFORMATION
  Report Type: Spontaneous
  Country: ES (occurrence: ES)
  Receive Date: 20190718
  Receipt Date: 20190718
  Transmission Date: 20191004
  Serious: Yes (Other)
  Sender: FDA-Public Use
  Company Number: ES-TEVA-2019-ES-1078029

PATIENT
  Sex: Male

DRUGS (2)
  1. TRAZODONA (3160A) [Suspect]
     Active Substance: TRAZODONE HYDROCHLORIDE
     Route: 048
     Dates: start: 2019
  2. DULOXETINA (7421A) [Suspect]
     Active Substance: DULOXETINE
     Route: 048
     Dates: start: 2019

REACTIONS (2)
  - Paedophilia [Recovered/Resolved]
  - Sleep sex [Recovered/Resolved]

NARRATIVE: CASE EVENT DATE: 2019
